FAERS Safety Report 6092594-8 (Version None)
Quarter: 2009Q1

REPORT INFORMATION
  Report Type: 
  Country: None (occurrence: None)
  Receive Date: 20090225
  Receipt Date: 20080613
  Transmission Date: 20090719
  Serious: No
  Sender: FDA-Public Use
  Company Number: US-BRISTOL-MYERS SQUIBB COMPANY-14227029

PATIENT

DRUGS (1)
  1. KENALOG-10 [Suspect]
     Dosage: INJECTABLE SUSPENSION ,USP
     Route: 030

REACTIONS (1)
  - ACCIDENTAL EXPOSURE [None]
